FAERS Safety Report 5586408-X (Version None)
Quarter: 2008Q1

REPORT INFORMATION
  Report Type: 
  Country: None (occurrence: None)
  Receive Date: 20080110
  Receipt Date: 20080108
  Transmission Date: 20080703
  Serious: Yes (Death, Other)
  Sender: FDA-Public Use
  Company Number: FR-ELI_LILLY_AND_COMPANY-FR200709000870

PATIENT
  Sex: Female
  Weight: 90 kg

DRUGS (4)
  1. ZYPREXA [Suspect]
     Indication: BIPOLAR DISORDER
     Dosage: 5 MG, DAILY (1/D)
     Route: 048
     Dates: start: 20040601, end: 20040701
  2. ZYPREXA [Suspect]
     Dosage: 5 MG, DAILY (1/D)
     Route: 048
     Dates: start: 20060301
  3. ZYPREXA [Suspect]
     Dosage: 5 MG, OTHER
     Route: 048
  4. LITHIUM [Concomitant]
     Indication: BIPOLAR DISORDER
     Dosage: UNK, UNK
     Route: 048
     Dates: start: 20050901

REACTIONS (5)
  - ANAEMIA [None]
  - DEATH [None]
  - LYMPHOCYTE COUNT DECREASED [None]
  - PULMONARY EMBOLISM [None]
  - WEIGHT INCREASED [None]
